FAERS Safety Report 7926708-9 (Version None)
Quarter: 2011Q4

REPORT INFORMATION
  Report Type: 
  Country: None (occurrence: None)
  Receive Date: 20111118
  Receipt Date: 20111109
  Transmission Date: 20120403
  Serious: No
  Sender: FDA-Public Use
  Company Number: CA-JNJFOC-20111103850

PATIENT
  Age: 78 Year
  Sex: Female

DRUGS (2)
  1. DURAGESIC-12 [Suspect]
     Route: 062
  2. DURAGESIC-12 [Suspect]
     Indication: PRODUCT USED FOR UNKNOWN INDICATION
     Route: 062
     Dates: start: 20111028

REACTIONS (3)
  - DRUG DOSE OMISSION [None]
  - PRODUCT PACKAGING QUANTITY ISSUE [None]
  - DRUG INEFFECTIVE [None]
